FAERS Safety Report 19560980 (Version 1)
Quarter: 2021Q3

REPORT INFORMATION
  Report Type: Spontaneous
  Country: US (occurrence: US)
  Receive Date: 20210716
  Receipt Date: 20210716
  Transmission Date: 20211014
  Serious: No
  Sender: FDA-Public Use
  Company Number: US-KVK-TECH, INC-20210400046

PATIENT
  Sex: Female

DRUGS (1)
  1. BUTALBITAL, ACETAMINOPHEN AND CAFFEINE TABLETS, USP [Suspect]
     Active Substance: ACETAMINOPHEN\BUTALBITAL\CAFFEINE
     Dosage: UNK
     Route: 048
     Dates: start: 202104

REACTIONS (2)
  - Dysphagia [Unknown]
  - Dysgeusia [Unknown]

NARRATIVE: CASE EVENT DATE: 202104
